FAERS Safety Report 10160235 (Version 2)
Quarter: 2014Q3

REPORT INFORMATION
  Report Type: Report from Study
  Country: NL (occurrence: NL)
  Receive Date: 20140508
  Receipt Date: 20140806
  Transmission Date: 20150326
  Serious: Yes (Death)
  Sender: FDA-Public Use
  Company Number: NL-ACTELION-A-CH2014-98573

PATIENT
  Age: 86 Year
  Sex: Female

DRUGS (3)
  1. TRACLEER [Suspect]
     Active Substance: BOSENTAN\BOSENTAN MONOHYDRATE
     Dosage: 125 MG, BID
     Route: 048
     Dates: start: 20080626
  2. TRACLEER [Suspect]
     Active Substance: BOSENTAN\BOSENTAN MONOHYDRATE
     Dosage: 62.5 UNK, UNK
     Route: 048
  3. TRACLEER [Suspect]
     Active Substance: BOSENTAN\BOSENTAN MONOHYDRATE
     Indication: SCLERODERMA ASSOCIATED DIGITAL ULCER
     Dosage: 125 MG, BID
     Route: 048

REACTIONS (4)
  - Cardiopulmonary failure [Fatal]
  - Intestinal ischaemia [Fatal]
  - Haemorrhagic stroke [Fatal]
  - Decreased interest [Unknown]

NARRATIVE: CASE EVENT DATE: 20131224
